FAERS Safety Report 6059549-0 (Version None)
Quarter: 2009Q1

REPORT INFORMATION
  Report Type: 
  Country: None (occurrence: None)
  Receive Date: 20090130
  Receipt Date: 20090120
  Transmission Date: 20090719
  Serious: Yes (Death, Other)
  Sender: FDA-Public Use
  Company Number: US-PFIZER INC-2008017415

PATIENT
  Sex: Female
  Weight: 111 kg

DRUGS (2)
  1. CELECOXIB [Suspect]
     Indication: FRACTURE
     Dosage: 200 MG, 1X/DAY
     Dates: start: 20020312, end: 20040101
  2. LIPITOR [Suspect]

REACTIONS (4)
  - CARDIAC DISORDER [None]
  - CARDIAC FAILURE CONGESTIVE [None]
  - CEREBROVASCULAR ACCIDENT [None]
  - CHEST PAIN [None]
